FAERS Safety Report 6282317-1 (Version None)
Quarter: 2009Q3

REPORT INFORMATION
  Report Type: 
  Country: None (occurrence: None)
  Receive Date: 20090722
  Receipt Date: 20090714
  Transmission Date: 20100115
  Serious: Yes (Other)
  Sender: FDA-Public Use
  Company Number: CHPA2009US13614

PATIENT

DRUGS (2)
  1. BENEFIBER W/WHEAT DEXTRIN (NCH) (WHEAT DEXTRIN) POWDER [Suspect]
     Indication: MEDICAL DIET
     Dosage: 2 TSP, QD, ORAL
     Route: 048
     Dates: start: 20080101, end: 20090616
  2. DIOVAN [Concomitant]

REACTIONS (4)
  - BLISTER [None]
  - FOOD ALLERGY [None]
  - PRURITUS [None]
  - RASH [None]
